FAERS Safety Report 17184909 (Version 1)
Quarter: 2019Q4

REPORT INFORMATION
  Report Type: Spontaneous
  Country: US (occurrence: US)
  Receive Date: 20191127
  Receipt Date: 20191127
  Transmission Date: 20200122
  Serious: Yes (Death)
  Sender: FDA-Public Use
  Company Number: None

PATIENT
  Age: 65 Year
  Sex: Male

DRUGS (2)
  1. TACROLIMUS CAPSULES [Suspect]
     Active Substance: TACROLIMUS
     Indication: LIVER TRANSPLANT
     Dosage: ?          OTHER FREQUENCY:1MG AM 0.5 MG PM ;?
     Route: 048
     Dates: start: 20150708
  2. MYCOPHENOLATE 250MG CAPS [Suspect]
     Active Substance: MYCOPHENOLATE MOFETIL
     Dosage: ?          OTHER FREQUENCY:3 TIMES A DAY ;?
     Route: 048

REACTIONS (1)
  - Death [None]

NARRATIVE: CASE EVENT DATE: 20191127
